FAERS Safety Report 25403625 (Version 1)
Quarter: 2025Q2

REPORT INFORMATION
  Report Type: Report from Study
  Country: US (occurrence: US)
  Receive Date: 20250605
  Receipt Date: 20250605
  Transmission Date: 20250717
  Serious: Yes (Hospitalization, Other)
  Sender: ABBVIE
  Company Number: US-ABBVIE-5956340

PATIENT
  Age: 64 Year
  Sex: Male

DRUGS (1)
  1. HUMIRA [Suspect]
     Active Substance: ADALIMUMAB
     Indication: Rheumatoid arthritis
     Route: 058
     Dates: start: 2021

REACTIONS (8)
  - COVID-19 [Unknown]
  - Nephrolithiasis [Unknown]
  - Foot deformity [Recovered/Resolved]
  - Hypoglycaemia [Unknown]
  - Gait inability [Recovering/Resolving]
  - Rheumatoid arthritis [Unknown]
  - Pain [Recovering/Resolving]
  - Back pain [Unknown]

NARRATIVE: CASE EVENT DATE: 20210101
